FAERS Safety Report 15487643 (Version 19)
Quarter: 2024Q3

REPORT INFORMATION
  Report Type: Spontaneous
  Country: JP (occurrence: JP)
  Receive Date: 20181011
  Receipt Date: 20240909
  Transmission Date: 20241017
  Serious: Yes (Hospitalization, Other)
  Sender: LUNDBECK
  Company Number: JP-SANOFI-2018SA250302

PATIENT

DRUGS (61)
  1. SABRIL [Suspect]
     Active Substance: VIGABATRIN
     Indication: Infantile spasms
     Dosage: UNK
     Route: 048
     Dates: start: 20180618, end: 20180704
  2. SABRIL [Suspect]
     Active Substance: VIGABATRIN
     Dosage: 600 MG, BID
     Route: 048
     Dates: start: 20200727, end: 20200824
  3. SABRIL [Suspect]
     Active Substance: VIGABATRIN
     Dosage: 750 MG, BID
     Route: 048
     Dates: start: 20200825
  4. SABRIL [Suspect]
     Active Substance: VIGABATRIN
     Dosage: 750 MG, BID
     Route: 048
     Dates: start: 20210105, end: 20210309
  5. SABRIL [Suspect]
     Active Substance: VIGABATRIN
     Dosage: 625 MG, BID
     Route: 048
     Dates: start: 20210310, end: 20210413
  6. SABRIL [Suspect]
     Active Substance: VIGABATRIN
     Dosage: 450 MG, BID
     Route: 048
     Dates: start: 20210414, end: 20210511
  7. SABRIL [Suspect]
     Active Substance: VIGABATRIN
     Dosage: 400 MG, BID
     Route: 048
     Dates: start: 20210512, end: 20210615
  8. SABRIL [Suspect]
     Active Substance: VIGABATRIN
     Dosage: 450 MG, BID
     Route: 048
     Dates: start: 20210616, end: 20210929
  9. SABRIL [Suspect]
     Active Substance: VIGABATRIN
     Dosage: 400 MG, BID
     Route: 048
     Dates: start: 20210930, end: 20211006
  10. SABRIL [Suspect]
     Active Substance: VIGABATRIN
     Dosage: 350 MG, BID
     Route: 048
     Dates: start: 20211007, end: 20211013
  11. SABRIL [Suspect]
     Active Substance: VIGABATRIN
     Dosage: 300 MG, BID
     Route: 048
     Dates: start: 20211014, end: 20211020
  12. SABRIL [Suspect]
     Active Substance: VIGABATRIN
     Dosage: UNK
     Route: 048
     Dates: start: 20180705, end: 20180803
  13. SABRIL [Suspect]
     Active Substance: VIGABATRIN
     Dosage: 250 MG, BID
     Route: 048
     Dates: start: 20211021, end: 20211130
  14. SABRIL [Suspect]
     Active Substance: VIGABATRIN
     Dosage: 150 MG, BID
     Route: 048
     Dates: start: 20211201, end: 20230509
  15. SABRIL [Suspect]
     Active Substance: VIGABATRIN
     Dosage: 200 MG, DAILY
     Route: 048
     Dates: start: 20230510, end: 20230628
  16. SABRIL [Suspect]
     Active Substance: VIGABATRIN
     Dosage: 100 MG, BID
     Route: 048
     Dates: start: 20230629, end: 20230705
  17. SABRIL [Suspect]
     Active Substance: VIGABATRIN
     Dosage: UNK UNK, BID
     Route: 048
     Dates: start: 20180804, end: 20180904
  18. SABRIL [Suspect]
     Active Substance: VIGABATRIN
     Dosage: UNK
     Route: 048
     Dates: start: 20180905, end: 20190131
  19. SABRIL [Suspect]
     Active Substance: VIGABATRIN
     Dosage: 750 MG, BID
     Route: 048
     Dates: start: 20190201, end: 20200105
  20. SABRIL [Suspect]
     Active Substance: VIGABATRIN
     Dosage: 600 MG, BID
     Route: 048
     Dates: start: 20200106, end: 20200202
  21. SABRIL [Suspect]
     Active Substance: VIGABATRIN
     Dosage: 750 MG, BID
     Route: 048
     Dates: start: 20200203, end: 20200510
  22. SABRIL [Suspect]
     Active Substance: VIGABATRIN
     Dosage: 900 MG, BID
     Route: 048
     Dates: start: 20200511, end: 20200628
  23. SABRIL [Suspect]
     Active Substance: VIGABATRIN
     Dosage: 750 MG, BID
     Route: 048
     Dates: start: 20200629, end: 20200726
  24. VIMPAT [Concomitant]
     Active Substance: LACOSAMIDE
     Indication: Infantile spasms
     Dosage: 90 MG, QD
     Route: 048
     Dates: end: 20180805
  25. VALPROATE SODIUM [Concomitant]
     Active Substance: VALPROATE SODIUM
     Indication: Infantile spasms
     Dosage: 600 MG, QD
     Route: 048
     Dates: end: 20190707
  26. PHENOBAL [PHENOBARBITAL SODIUM] [Concomitant]
     Indication: Infantile spasms
     Dosage: 80 MG, QD
     Route: 048
     Dates: end: 20201111
  27. LEVETIRACETAM [Concomitant]
     Active Substance: LEVETIRACETAM
     Indication: Infantile spasms
     Dosage: 520 MG, QD
     Route: 048
  28. LEVETIRACETAM [Concomitant]
     Active Substance: LEVETIRACETAM
     Dosage: DAILY DOSE 1200 MG, BID
     Route: 048
     Dates: start: 20200404
  29. PRANLUKAST [Concomitant]
     Active Substance: PRANLUKAST
     Indication: Asthma
     Dosage: 0.7 G, QD
     Route: 048
     Dates: end: 20200302
  30. PRANLUKAST [Concomitant]
     Active Substance: PRANLUKAST
     Dosage: 1 G, QD
     Route: 048
     Dates: start: 20200303
  31. PRANLUKAST [Concomitant]
     Active Substance: PRANLUKAST
     Dosage: DAILY DOSE 130 MG, BID
     Route: 048
     Dates: start: 20210105
  32. VALPROATE SODIUM [Concomitant]
     Active Substance: VALPROATE SODIUM
     Indication: Infantile spasms
     Dosage: 600 MG/DAY
     Route: 048
     Dates: start: 20190708, end: 20200628
  33. VALPROATE SODIUM [Concomitant]
     Active Substance: VALPROATE SODIUM
     Dosage: 800 MG/DAY
     Route: 048
     Dates: start: 20200629, end: 20200726
  34. VALPROATE SODIUM [Concomitant]
     Active Substance: VALPROATE SODIUM
     Dosage: 300 MG, TID
     Route: 048
     Dates: start: 20200727, end: 20230705
  35. LEVOCARNITINE HYDROCHLORIDE [Concomitant]
     Active Substance: LEVOCARNITINE HYDROCHLORIDE
     Indication: Product used for unknown indication
     Dosage: DAILY DOSE: 500 MG
     Route: 048
  36. LEVOCARNITINE HYDROCHLORIDE [Concomitant]
     Active Substance: LEVOCARNITINE HYDROCHLORIDE
     Dosage: 10 ML/DAY
     Route: 048
  37. LEVOCARNITINE HYDROCHLORIDE [Concomitant]
     Active Substance: LEVOCARNITINE HYDROCHLORIDE
     Dosage: 5 MG, QD
     Route: 048
     Dates: start: 20210105
  38. ROZEREM [Concomitant]
     Active Substance: RAMELTEON
     Indication: Product used for unknown indication
     Dosage: 2.4 MG/DAY
     Route: 048
  39. MOVICOL [Concomitant]
     Active Substance: POLYETHYLENE GLYCOL 3350\POTASSIUM CHLORIDE\SODIUM BICARBONATE\SODIUM CHLORIDE
     Indication: Gastrointestinal motility disorder
     Dosage: 1 SACHET, AFTER BREAKFAST
     Route: 048
     Dates: start: 20200527
  40. MOSAPRIDE CITRATE [Concomitant]
     Active Substance: MOSAPRIDE CITRATE
     Indication: Product used for unknown indication
     Dosage: 15 MG/DAY, BID
     Route: 048
  41. MOSAPRIDE CITRATE [Concomitant]
     Active Substance: MOSAPRIDE CITRATE
     Dosage: 1.5 G/DAY
     Route: 048
     Dates: start: 20200527
  42. PULMICORT TURBUHALER [Concomitant]
     Active Substance: BUDESONIDE
     Indication: Gastrointestinal motility disorder
     Dosage: 0.25 MG/DAY
     Route: 055
     Dates: end: 20210107
  43. URALYT U [POTASSIUM CITRATE;SODIUM CITRATE DIHYDRATE] [Concomitant]
     Indication: Gastrointestinal motility disorder
     Dosage: 1 G/DAY
     Route: 048
     Dates: start: 20190410
  44. URALYT U [POTASSIUM CITRATE;SODIUM CITRATE DIHYDRATE] [Concomitant]
     Dosage: 1.5 G/DAY
     Route: 048
     Dates: start: 20200527
  45. ATRACTYLODES SPP. RHIZOME;CITRUS RETICULATA PEEL;GLYCYRRHIZA SPP. ROOT [Concomitant]
     Indication: Gastrointestinal motility disorder
     Dosage: 2 G/DAY, BID
     Route: 048
     Dates: start: 20190424, end: 20230110
  46. AMINO ACIDS\DEXTROSE\ELECTROLYTES NOS\SOYBEAN OIL\VITAMINS [Concomitant]
     Active Substance: AMINO ACIDS\DEXTROSE\ELECTROLYTES NOS\SOYBEAN OIL\VITAMINS
     Indication: Product used for unknown indication
     Dosage: 900 ML/DAY
     Route: 065
     Dates: start: 20210105
  47. ZONISAMIDE [Concomitant]
     Active Substance: ZONISAMIDE
     Indication: Infantile spasms
     Dosage: 18 MG/DAY
     Route: 048
     Dates: start: 20201222, end: 20210104
  48. ZONISAMIDE [Concomitant]
     Active Substance: ZONISAMIDE
     Dosage: 18 MG, BID
     Route: 048
     Dates: start: 20210105, end: 20210114
  49. ZONISAMIDE [Concomitant]
     Active Substance: ZONISAMIDE
     Dosage: 54 MG/DAY
     Route: 048
     Dates: start: 20210115, end: 20210614
  50. ZONISAMIDE [Concomitant]
     Active Substance: ZONISAMIDE
     Dosage: 70 MG/DAY
     Route: 048
     Dates: start: 20210615
  51. BRITAI [Concomitant]
     Indication: Product used for unknown indication
     Dosage: 8 G, QD AFTER DINNER
     Route: 048
     Dates: start: 20210105
  52. ENEVO [Concomitant]
     Indication: Product used for unknown indication
     Dosage: ONCE IN THE EVENING
     Route: 065
     Dates: start: 20210105
  53. PRANLUKAST [Concomitant]
     Active Substance: PRANLUKAST
     Indication: Product used for unknown indication
     Dosage: 10 G/DAY
     Route: 048
     Dates: start: 20200303
  54. VITAMINS [Concomitant]
     Active Substance: VITAMINS
     Indication: Prophylaxis
     Dosage: 0.4 G/DAY
     Route: 048
     Dates: start: 20190515
  55. VITAMINS [Concomitant]
     Active Substance: VITAMINS
     Indication: Investigation
  56. BIOTIN [Concomitant]
     Active Substance: BIOTIN
     Indication: Prophylaxis
     Dosage: 0.4 G/DAY
     Route: 048
     Dates: start: 20190515
  57. BIOTIN [Concomitant]
     Active Substance: BIOTIN
     Indication: Investigation
  58. LEVETIRACETAM [Concomitant]
     Active Substance: LEVETIRACETAM
     Indication: Infantile spasms
     Dates: start: 20201104, end: 20230705
  59. CARBOCYSTEINE [Concomitant]
     Active Substance: CARBOCYSTEINE
     Indication: Product used for unknown indication
     Dates: start: 20201012, end: 20230705
  60. ZONISAMIDE [Concomitant]
     Active Substance: ZONISAMIDE
     Indication: Infantile spasms
     Dates: start: 20210615, end: 20230705
  61. CLONAZEPAM [Concomitant]
     Active Substance: CLONAZEPAM
     Indication: Infantile spasms
     Dates: start: 20220415, end: 20230705

REACTIONS (9)
  - Oral discharge [Recovering/Resolving]
  - Asthma [Recovering/Resolving]
  - Pneumonia [Recovering/Resolving]
  - Retinogram abnormal [Unknown]
  - Constipation [Recovering/Resolving]
  - Dyspepsia [Recovering/Resolving]
  - Upper respiratory tract inflammation [Recovering/Resolving]
  - Asthma [Recovering/Resolving]
  - Drug ineffective [Unknown]

NARRATIVE: CASE EVENT DATE: 20180804
